FAERS Safety Report 4455225-6 (Version None)
Quarter: 2004Q3

REPORT INFORMATION
  Report Type: 
  Country: None (occurrence: None)
  Receive Date: 20040917
  Receipt Date: 20040908
  Transmission Date: 20050211
  Serious: Yes (Life-Threatening)
  Sender: FDA-Public Use
  Company Number: ENT 2004-0171

PATIENT
  Age: 69 Year
  Sex: Male

DRUGS (5)
  1. COMTAN [Suspect]
     Dosage: 800 MG (200 MG, 4 IN 1 D)
     Route: 048
  2. REQUIP [Suspect]
     Dosage: 7.5 MG (2.5 MG, 3 IN 1 D)
  3. REMINYL [Suspect]
     Dosage: BID
     Route: 048
     Dates: start: 20040706, end: 20040719
  4. SINEMET [Suspect]
     Dosage: QID
     Route: 048
  5. STABLON [Concomitant]

REACTIONS (5)
  - COGNITIVE DISORDER [None]
  - DEHYDRATION [None]
  - HYPOGLYCAEMIA [None]
  - SOMNOLENCE [None]
  - STATUS EPILEPTICUS [None]
